FAERS Safety Report 18668793 (Version 1)
Quarter: 2020Q4

REPORT INFORMATION
  Report Type: Report from Study
  Country: FR (occurrence: FR)
  Receive Date: 20201228
  Receipt Date: 20201228
  Transmission Date: 20210114
  Serious: Yes (Other)
  Sender: FDA-Public Use
  Company Number: FR-ACCORD-210144

PATIENT
  Age: 74 Year
  Sex: Male
  Weight: 81 kg

DRUGS (16)
  1. MIANSERIN [Concomitant]
     Active Substance: MIANSERIN
     Route: 048
  2. LOVENOX [Concomitant]
     Active Substance: ENOXAPARIN SODIUM
     Dosage: UNK
     Dates: start: 20201011, end: 20201025
  3. PARACETAMOL [Concomitant]
     Active Substance: ACETAMINOPHEN
  4. AMOXICILLIN. [Concomitant]
     Active Substance: AMOXICILLIN
     Dosage: UNK
     Dates: start: 20201007
  5. LAMICTAL [Concomitant]
     Active Substance: LAMOTRIGINE
     Indication: EPILEPSY
     Dosage: UNK
     Route: 048
     Dates: start: 201910
  6. COUMADIN [Concomitant]
     Active Substance: WARFARIN SODIUM
     Dosage: UNK
     Dates: start: 202005
  7. OXYGEN. [Concomitant]
     Active Substance: OXYGEN
     Dosage: 2L/MIN
     Dates: start: 20201012
  8. CIRCADIN [Concomitant]
     Active Substance: MELATONIN
     Route: 048
  9. OXYGEN. [Concomitant]
     Active Substance: OXYGEN
     Dosage: 1L/MIN
     Dates: start: 20201009
  10. DAPTOMYCIN. [Suspect]
     Active Substance: DAPTOMYCIN
     Indication: STAPHYLOCOCCAL BACTERAEMIA
     Dosage: 850 MG, QD
     Route: 042
     Dates: start: 20201011, end: 20201016
  11. REMDESIVIR. [Suspect]
     Active Substance: REMDESIVIR
     Indication: CORONAVIRUS INFECTION
     Dosage: STRENGTH: 5 MG / ML ,
     Route: 042
     Dates: start: 20201011, end: 20201016
  12. DAPTOMYCIN. [Suspect]
     Active Substance: DAPTOMYCIN
     Indication: CORONAVIRUS INFECTION
     Route: 042
     Dates: start: 20201012
  13. TRAMADOL. [Concomitant]
     Active Substance: TRAMADOL
     Route: 048
  14. DEXAMETHASONE. [Concomitant]
     Active Substance: DEXAMETHASONE
  15. TAZOCILLINE [Concomitant]
     Active Substance: PIPERACILLIN SODIUM\TAZOBACTAM SODIUM
     Dates: start: 20201008, end: 202010
  16. REMDESIVIR. [Suspect]
     Active Substance: REMDESIVIR
     Indication: CORONAVIRUS INFECTION
     Dosage: STRENGTH: 5 MG / ML
     Route: 042
     Dates: start: 20201012, end: 20201016

REACTIONS (2)
  - Erythema [Recovered/Resolved]
  - Off label use [Unknown]

NARRATIVE: CASE EVENT DATE: 20201016
